FAERS Safety Report 6816454-7 (Version None)
Quarter: 2010Q2

REPORT INFORMATION
  Report Type: 
  Country: None (occurrence: None)
  Receive Date: 20100630
  Receipt Date: 20100623
  Transmission Date: 20101027
  Serious: Yes (Other)
  Sender: FDA-Public Use
  Company Number: 2010PL000064

PATIENT
  Age: 23 Year
  Sex: Female
  Weight: 44.9061 kg

DRUGS (4)
  1. LOTRONEX [Suspect]
     Indication: IRRITABLE BOWEL SYNDROME
     Dosage: 0.5 MG;QD;PO
     Route: 048
  2. DESLORATADINE [Concomitant]
  3. MICROGESTIN 1.5/30 [Concomitant]
  4. TOPAMAX [Concomitant]

REACTIONS (2)
  - COLITIS [None]
  - DIARRHOEA HAEMORRHAGIC [None]
